FAERS Safety Report 19591117 (Version 1)
Quarter: 2021Q3

REPORT INFORMATION
  Report Type: Spontaneous
  Country: CA (occurrence: CA)
  Receive Date: 20210721
  Receipt Date: 20210721
  Transmission Date: 20211014
  Serious: Yes (Other)
  Sender: FDA-Public Use
  Company Number: CA-GREER LABORATORIES, INC.-2114106

PATIENT
  Age: 34 Year
  Sex: Female

DRUGS (12)
  1. ALLERGENIC EXTRACT? MITE, DERMATOPHAGOIDES FARINAE [Suspect]
     Active Substance: DERMATOPHAGOIDES FARINAE
     Indication: RHINITIS ALLERGIC
     Route: 058
     Dates: start: 20210623
  2. BUDESONIDE. [Concomitant]
     Active Substance: BUDESONIDE
     Route: 045
  3. POLLENS ? TREES, ALDER, RED ALNUS RUBRA [Suspect]
     Active Substance: ALNUS RUBRA POLLEN
     Route: 058
     Dates: start: 20210623
  4. POLLENS ? TREES, BIRCH, WHITE, BETULA POPULIFOLIA [Suspect]
     Active Substance: BETULA POPULIFOLIA POLLEN
     Route: 058
     Dates: start: 20210623
  5. ALLERGENIC EXTRACT? ORCHARD GRASS DACTYLIS GLOMERATA [Suspect]
     Active Substance: DACTYLIS GLOMERATA POLLEN
     Route: 058
     Dates: start: 20210623
  6. PATADAY [Concomitant]
     Active Substance: OLOPATADINE HYDROCHLORIDE
     Route: 061
  7. STANDARDIZED TIMOTHY GRASS POLLEN [Suspect]
     Active Substance: PHLEUM PRATENSE POLLEN
     Route: 058
     Dates: start: 20210623
  8. DILUENT, NORMAL SALINE [Suspect]
     Active Substance: SODIUM CHLORIDE
     Route: 058
     Dates: start: 20210623
  9. STANDARDIZED MITE DERMATOPHAGOIDES PTERONYSSINUS [Suspect]
     Active Substance: DERMATOPHAGOIDES PTERONYSSINUS
     Route: 058
     Dates: start: 20210623
  10. ALLERGENIC EXTRACT? REDTOP AGROSTIS ALBA [Suspect]
     Active Substance: AGROSTIS GIGANTEA POLLEN
     Route: 058
     Dates: start: 20210623
  11. ALLERGENIC EXTRACT? BLUEGRASS, KENTUCKY JUNE POA PRATENSIS [Suspect]
     Active Substance: POA PRATENSIS POLLEN
     Route: 058
     Dates: start: 20210623
  12. DILUENT, NORMAL SALINE [Suspect]
     Active Substance: SODIUM CHLORIDE
     Route: 058

REACTIONS (2)
  - Anaphylactic reaction [Recovered/Resolved]
  - Incorrect dose administered [Recovered/Resolved]

NARRATIVE: CASE EVENT DATE: 20210623
